FAERS Safety Report 25622022 (Version 2)
Quarter: 2025Q3

REPORT INFORMATION
  Report Type: Spontaneous
  Country: US (occurrence: US)
  Receive Date: 20250730
  Receipt Date: 20250814
  Transmission Date: 20251020
  Serious: Yes (Other)
  Sender: BAYER HEALTHCARE PHARMACEUTICALS INC.
  Company Number: US-BAYER-2025A096590

PATIENT
  Age: 69 Year
  Sex: Female

DRUGS (4)
  1. VITRAKVI [Suspect]
     Active Substance: LAROTRECTINIB
     Indication: Pancreatic carcinoma
     Dates: start: 2025, end: 2025
  2. GEMCITABINE [Concomitant]
     Active Substance: GEMCITABINE
  3. PACLITAXEL [Concomitant]
     Active Substance: PACLITAXEL
  4. DENOSUMAB [Concomitant]
     Active Substance: DENOSUMAB

REACTIONS (2)
  - Disease progression [Not Recovered/Not Resolved]
  - Metastases to bone [None]

NARRATIVE: CASE EVENT DATE: 20250101
